FAERS Safety Report 7789432-1 (Version None)
Quarter: 2011Q3

REPORT INFORMATION
  Report Type: 
  Country: None (occurrence: None)
  Receive Date: 20110930
  Receipt Date: 20110920
  Transmission Date: 20111222
  Serious: Yes (Hospitalization)
  Sender: FDA-Public Use
  Company Number: US-JNJFOC-20110910271

PATIENT
  Sex: Male
  Weight: 52 kg

DRUGS (10)
  1. MESALAMINE [Concomitant]
  2. CALCIUM CARBONATE [Concomitant]
  3. PROBIOTICS [Concomitant]
  4. IRON DEXTRAN [Concomitant]
  5. REMICADE [Suspect]
     Route: 042
     Dates: start: 20110908
  6. MULTI-VITAMINS [Concomitant]
  7. REMICADE [Suspect]
     Indication: CROHN'S DISEASE
     Route: 042
  8. FERROUS SULFATE TAB [Concomitant]
  9. MERCAPTOPURINE [Concomitant]
  10. VITAMIN D [Concomitant]

REACTIONS (1)
  - SMALL INTESTINAL OBSTRUCTION [None]
